FAERS Safety Report 9597926 (Version 1)
Quarter: 2013Q4

REPORT INFORMATION
  Report Type: Spontaneous
  Country: US (occurrence: US)
  Receive Date: 20131004
  Receipt Date: 20131004
  Transmission Date: 20140711
  Serious: No
  Sender: FDA-Public Use
  Company Number: US-AMGEN-USASP2013021355

PATIENT
  Age: 62 Year
  Sex: Male
  Weight: 92.97 kg

DRUGS (1)
  1. ENBREL [Suspect]
     Indication: PSORIATIC ARTHROPATHY
     Dosage: 50 MG, QWK
     Route: 058

REACTIONS (5)
  - Fall [Unknown]
  - Foot fracture [Unknown]
  - Musculoskeletal chest pain [Unknown]
  - Contusion [Unknown]
  - Gout [Unknown]
